FAERS Safety Report 24611975 (Version 3)
Quarter: 2025Q4

REPORT INFORMATION
  Report Type: Spontaneous
  Country: JP (occurrence: JP)
  Receive Date: 20241113
  Receipt Date: 20251031
  Transmission Date: 20260117
  Serious: Yes (Death, Hospitalization, Other)
  Sender: VIIV
  Company Number: JP-VIIVHC-JP2024JPN139933AA

PATIENT
  Sex: Male

DRUGS (6)
  1. EPZICOM [Suspect]
     Active Substance: ABACAVIR SULFATE\LAMIVUDINE
     Indication: HIV infection
     Dosage: 1 DF, 1D
  2. EPIVIR [Suspect]
     Active Substance: LAMIVUDINE
     Indication: HIV infection
     Dosage: 300 MG, 1D
  3. STAVUDINE [Suspect]
     Active Substance: STAVUDINE
     Indication: HIV infection
     Dosage: UNK
  4. LOPINAVIR\RITONAVIR [Concomitant]
     Active Substance: LOPINAVIR\RITONAVIR
     Indication: HIV infection
     Dosage: UNK
  5. RALTEGRAVIR [Concomitant]
     Active Substance: RALTEGRAVIR
     Indication: HIV infection
     Dosage: UNK
  6. RALTEGRAVIR [Concomitant]
     Active Substance: RALTEGRAVIR
     Dosage: UNK, 1D

REACTIONS (9)
  - Neuropathy peripheral [Recovered/Resolved]
  - Thrombophlebitis migrans [Fatal]
  - Pulmonary embolism [Fatal]
  - Hepatic cancer [Fatal]
  - Metastases to pancreas [Fatal]
  - Dyslipidaemia [Not Recovered/Not Resolved]
  - Faeces discoloured [Recovered/Resolved]
  - Polyp [Unknown]
  - Flank pain [Recovered/Resolved]

NARRATIVE: CASE EVENT DATE: 20080301
